FAERS Safety Report 5818289-0 (Version None)
Quarter: 2008Q3

REPORT INFORMATION
  Report Type: 
  Country: None (occurrence: None)
  Receive Date: 20080717
  Receipt Date: 20080702
  Transmission Date: 20090109
  Serious: Yes (Hospitalization)
  Sender: FDA-Public Use
  Company Number: SPV1-2008-01440

PATIENT
  Age: 93 Year
  Sex: Male

DRUGS (6)
  1. ANAGRELIDE HYDROCHLORIDE [Suspect]
     Indication: MYELOPROLIFERATIVE DISORDER
     Dosage: ORAL
     Route: 048
     Dates: start: 20080311, end: 20080315
  2. HYDREA [Suspect]
     Indication: MYELOPROLIFERATIVE DISORDER
     Dosage: ORAL
     Route: 048
     Dates: start: 20080201, end: 20080416
  3. PANTOPRAZOLE SODIUM [Concomitant]
  4. IBUPROFEN [Concomitant]
  5. PLAVIX  /01220701/ (CLOPIDOGREL) TABLET [Concomitant]
  6. SINTROM [Concomitant]

REACTIONS (4)
  - ALANINE AMINOTRANSFERASE INCREASED [None]
  - ASPARTATE AMINOTRANSFERASE INCREASED [None]
  - DRUG INTERACTION [None]
  - LIVER DISORDER [None]
